FAERS Safety Report 6603226-1 (Version None)
Quarter: 2010Q1

REPORT INFORMATION
  Report Type: 
  Country: None (occurrence: None)
  Receive Date: 20100219
  Receipt Date: 20100201
  Transmission Date: 20100710
  Serious: Yes (Hospitalization)
  Sender: FDA-Public Use
  Company Number: 2010AL000891

PATIENT
  Age: 63 Year
  Sex: Male

DRUGS (6)
  1. BICALUTAMIDE [Suspect]
     Indication: PROSTATE CANCER
     Dosage: 50 MG;QD;PO
     Route: 048
     Dates: start: 20090429, end: 20091210
  2. TAXOTERE [Concomitant]
  3. MOXALOLE [Concomitant]
  4. MALFIN [Concomitant]
  5. UNIKALK PULS [Concomitant]
  6. PINEX [Concomitant]

REACTIONS (2)
  - HEPATITIS CHOLESTATIC [None]
  - HEPATITIS TOXIC [None]
